FAERS Safety Report 22201031 (Version 3)
Quarter: 2023Q2

REPORT INFORMATION
  Report Type: Spontaneous
  Country: IT (occurrence: IT)
  Receive Date: 20230412
  Receipt Date: 20230428
  Transmission Date: 20230722
  Serious: Yes (Other)
  Sender: FDA-Public Use
  Company Number: IT-ROCHE-3323028

PATIENT
  Age: 51 Year
  Sex: Female

DRUGS (4)
  1. ERLOTINIB [Suspect]
     Active Substance: ERLOTINIB
     Indication: Lung neoplasm malignant
     Dosage: UNK UNK, UNKNOWN FREQ.
     Route: 048
     Dates: start: 202005, end: 20200715
  2. PRALSETINIB [Suspect]
     Active Substance: PRALSETINIB
     Indication: Lung neoplasm malignant
     Route: 048
     Dates: start: 20201125, end: 202109
  3. DOCETAXEL [Suspect]
     Active Substance: DOCETAXEL
     Indication: Lung neoplasm malignant
     Dosage: UNK UNK, UNKNOWN FREQ.(FOURTH LINE WITH DOCETAXEL AND EXPERIENCED DISEASE PROGRESSION (LATERAL CERVI
     Route: 065
     Dates: start: 20200730, end: 20200910
  4. PEMETREXED [Concomitant]
     Active Substance: PEMETREXED
     Indication: Product used for unknown indication
     Dosage: UNK UNK, UNKNOWN FREQ. (FIRST LINE WITH CDDP-PEMETREXED LINE X 4 CYCLES WITH PARTIAL RESPONSE)C, DAT
     Route: 065
     Dates: start: 201810, end: 201911

REACTIONS (3)
  - Blood creatine phosphokinase increased [Unknown]
  - Hypertransaminasaemia [Unknown]
  - Malignant neoplasm progression [Unknown]
